FAERS Safety Report 6519379-X (Version None)
Quarter: 2009Q4

REPORT INFORMATION
  Report Type: 
  Country: None (occurrence: None)
  Receive Date: 20091228
  Receipt Date: 20091223
  Transmission Date: 20100525
  Serious: Yes (Death, Hospitalization)
  Sender: FDA-Public Use
  Company Number: FR-BAYER-200943687GPV

PATIENT
  Age: 95 Year
  Sex: Male
  Weight: 55 kg

DRUGS (1)
  1. NEXAVAR [Suspect]
     Indication: NEOPLASM
     Dosage: TOTAL DAILY DOSE: 400 MG  UNIT DOSE: 200 MG
     Route: 048
     Dates: start: 20080419, end: 20080513

REACTIONS (4)
  - APHASIA [None]
  - FACIAL PALSY [None]
  - GRAND MAL CONVULSION [None]
  - ISCHAEMIC STROKE [None]
